FAERS Safety Report 9656674 (Version 2)
Quarter: 2014Q1

REPORT INFORMATION
  Report Type: Spontaneous
  Country: DK (occurrence: FR)
  Receive Date: 20131030
  Receipt Date: 20140129
  Transmission Date: 20141002
  Serious: Yes (Hospitalization)
  Sender: FDA-Public Use
  Company Number: FR-FRI-1000050591

PATIENT
  Age: 77 Year
  Sex: Male

DRUGS (4)
  1. ESCITALOPRAM [Suspect]
     Indication: DEPRESSION
     Dosage: 1 DF
     Route: 048
     Dates: start: 201301, end: 201309
  2. EBIXA [Concomitant]
     Dates: start: 2010, end: 201309
  3. ARICEPT [Concomitant]
     Dates: start: 2009, end: 201309
  4. RISPERDAL [Concomitant]
     Dates: start: 201304, end: 201309

REACTIONS (1)
  - Neutropenia [Recovered/Resolved]
